FAERS Safety Report 20818176 (Version 10)
Quarter: 2025Q3

REPORT INFORMATION
  Report Type: Spontaneous
  Country: US (occurrence: US)
  Receive Date: 20220512
  Receipt Date: 20250904
  Transmission Date: 20251021
  Serious: Yes (Other)
  Sender: PFIZER
  Company Number: US-PFIZER INC-2020248070

PATIENT
  Age: 66 Year
  Sex: Male
  Weight: 82.55 kg

DRUGS (4)
  1. XELJANZ [Suspect]
     Active Substance: TOFACITINIB CITRATE
     Indication: Rheumatoid arthritis
     Dosage: 5 MG, 2X/DAY
     Route: 048
     Dates: start: 20200723
  2. ASPIRIN [Concomitant]
     Active Substance: ASPIRIN
  3. FOLIC ACID [Concomitant]
     Active Substance: FOLIC ACID
     Indication: White blood cell count decreased
     Dosage: 1 MG, DAILY
     Dates: start: 20200306
  4. TAMSULOSIN HYDROCHLORIDE [Concomitant]
     Active Substance: TAMSULOSIN HYDROCHLORIDE

REACTIONS (4)
  - Rheumatoid arthritis [Unknown]
  - Knee arthroplasty [Unknown]
  - Therapeutic response unexpected [Unknown]
  - Pain [Not Recovered/Not Resolved]

NARRATIVE: CASE EVENT DATE: 20250101
